FAERS Safety Report 5661839-8 (Version None)
Quarter: 2008Q1

REPORT INFORMATION
  Report Type: 
  Country: None (occurrence: None)
  Receive Date: 20080312
  Receipt Date: 20070202
  Transmission Date: 20080703
  Serious: No
  Sender: FDA-Public Use
  Company Number: US-BRISTOL-MYERS SQUIBB COMPANY-13667894

PATIENT

DRUGS (1)
  1. KANTREX [Suspect]

REACTIONS (1)
  - DEAFNESS [None]
